FAERS Safety Report 7361020-0 (Version None)
Quarter: 2011Q1

REPORT INFORMATION
  Report Type: 
  Country: None (occurrence: None)
  Receive Date: 20110318
  Receipt Date: 20110310
  Transmission Date: 20110831
  Serious: Yes (Death)
  Sender: FDA-Public Use
  Company Number: US-BAXTER-2010BH029856

PATIENT
  Age: 68 Year
  Sex: Female
  Weight: 63 kg

DRUGS (7)
  1. XANAX [Concomitant]
     Indication: ANXIETY
     Route: 065
  2. MAGNESIUM [Concomitant]
     Indication: PRODUCT USED FOR UNKNOWN INDICATION
     Route: 065
  3. DURAMORPH PF [Suspect]
     Indication: PRODUCT USED FOR UNKNOWN INDICATION
     Route: 065
  4. MORPHINE [Concomitant]
     Indication: PAIN
     Route: 065
  5. OMEPRAZOLE [Concomitant]
     Indication: ULCER
     Route: 065
  6. PHENERGAN [Concomitant]
     Indication: MOTION SICKNESS
     Route: 065
  7. LORTAB [Concomitant]
     Indication: PAIN
     Route: 065

REACTIONS (1)
  - NEOPLASM MALIGNANT [None]
